FAERS Safety Report 4407044-4 (Version None)
Quarter: 2004Q3

REPORT INFORMATION
  Report Type: 
  Country: None (occurrence: None)
  Receive Date: 20040721
  Receipt Date: 20040712
  Transmission Date: 20050211
  Serious: Yes (Other)
  Sender: FDA-Public Use
  Company Number: 002037

PATIENT
  Age: 70 Year
  Sex: Female

DRUGS (4)
  1. MEDROXYPROGESTERONE ACETATE [Suspect]
     Dates: start: 19880101, end: 19980101
  2. PREMARIN [Suspect]
     Dates: start: 19880101, end: 19980101
  3. PROVERA [Suspect]
  4. MEDROXYPROGESTERONE ACETATE [Suspect]
     Dates: start: 19980101, end: 20020101

REACTIONS (1)
  - BREAST CANCER [None]
